FAERS Safety Report 15385760 (Version 1)
Quarter: 2018Q3

REPORT INFORMATION
  Report Type: Spontaneous
  Country: US (occurrence: US)
  Receive Date: 20180907
  Receipt Date: 20180907
  Transmission Date: 20181010
  Serious: Yes (Hospitalization, Disabling, Other)
  Sender: FDA-Public Use
  Company Number: None

PATIENT
  Age: 31 Year
  Sex: Female
  Weight: 62.55 kg

DRUGS (1)
  1. METHYLPREDNISOLONE. [Suspect]
     Active Substance: METHYLPREDNISOLONE
     Indication: ARTHROPOD BITE
     Dates: start: 20180729, end: 20180803

REACTIONS (4)
  - Pain [None]
  - Movement disorder [None]
  - Gait inability [None]
  - Mental disorder [None]

NARRATIVE: CASE EVENT DATE: 20180806
